FAERS Safety Report 11746594 (Version 1)
Quarter: 2015Q4

REPORT INFORMATION
  Report Type: Spontaneous
  Country: US (occurrence: None)
  Receive Date: 20151116
  Receipt Date: 20151116
  Transmission Date: 20160304
  Serious: Yes (Other)
  Sender: FDA-Public Use
  Company Number: 1937531-2015-00014

PATIENT

DRUGS (1)
  1. BACTOSHIELD CHG [Suspect]
     Active Substance: CHLORHEXIDINE GLUCONATE

REACTIONS (1)
  - Infection [None]

NARRATIVE: CASE EVENT DATE: 20151023
